FAERS Safety Report 14368361 (Version 8)
Quarter: 2022Q2

REPORT INFORMATION
  Report Type: Spontaneous
  Country: GB (occurrence: GB)
  Receive Date: 20180109
  Receipt Date: 20220425
  Transmission Date: 20220721
  Serious: Yes (Death, Other)
  Sender: FDA-Public Use
  Company Number: GB-GRUNENTHAL-2017-25153

PATIENT
  Age: 23 Year
  Sex: Female

DRUGS (9)
  1. TRAMADOL [Interacting]
     Active Substance: TRAMADOL
     Indication: Product used for unknown indication
     Dosage: UNK
  2. SERTRALINE [Interacting]
     Active Substance: SERTRALINE HYDROCHLORIDE
     Dosage: UNK
  3. DIAZEPAM [Interacting]
     Active Substance: DIAZEPAM
     Indication: Product used for unknown indication
     Dosage: UNK
  4. PREGABALIN [Suspect]
     Active Substance: PREGABALIN
     Indication: Epilepsy
     Dosage: UNK, DOSAGE FORM: UNSPECIFIED
     Route: 048
  5. PREGABALIN [Suspect]
     Active Substance: PREGABALIN
     Indication: Pain
  6. PREGABALIN [Suspect]
     Active Substance: PREGABALIN
     Indication: Epilepsy
     Dosage: UNK
  7. CODEINE [Suspect]
     Active Substance: CODEINE
     Indication: Product used for unknown indication
     Dosage: UNK
  8. IMODIUM [Suspect]
     Active Substance: LOPERAMIDE HYDROCHLORIDE
     Indication: Diarrhoea
     Dosage: UNK, DOSAGE FORM: UNSPECIFIED
     Route: 065
  9. CANNABIS SATIVA SUBSP. INDICA TOP [Concomitant]
     Active Substance: CANNABIS SATIVA SUBSP. INDICA TOP
     Indication: Product used for unknown indication
     Dosage: UNK

REACTIONS (43)
  - Pneumonia [Fatal]
  - Drug abuse [Fatal]
  - Myocardial infarction [Fatal]
  - Bacterial infection [Fatal]
  - Toxicity to various agents [Fatal]
  - Cardiac arrest [Fatal]
  - Skin discolouration [Fatal]
  - Respiratory arrest [Fatal]
  - Brain injury [Fatal]
  - Drug level increased [Fatal]
  - Breath sounds abnormal [Fatal]
  - Aggression [Fatal]
  - Agitation [Fatal]
  - Anger [Fatal]
  - Feeling cold [Fatal]
  - Dyspnoea [Fatal]
  - Intentional self-injury [Fatal]
  - Contusion [Fatal]
  - Snoring [Fatal]
  - Tooth disorder [Fatal]
  - Loss of consciousness [Fatal]
  - Pallor [Fatal]
  - Nervous system disorder [Fatal]
  - Epilepsy [Fatal]
  - Schizophrenia [Fatal]
  - Multiple sclerosis [Fatal]
  - Therapy non-responder [Fatal]
  - Pneumonitis [Fatal]
  - Muscle tightness [Fatal]
  - Foaming at mouth [Fatal]
  - Accidental overdose [Fatal]
  - Alcohol abuse [Fatal]
  - Dysarthria [Fatal]
  - Gait disturbance [Fatal]
  - Accidental death [Fatal]
  - Cyanosis [Fatal]
  - Overdose [Unknown]
  - Depressed level of consciousness [Not Recovered/Not Resolved]
  - Balance disorder [Unknown]
  - Drug dependence [Unknown]
  - Lip discolouration [Unknown]
  - Potentiating drug interaction [Unknown]
  - Drug interaction [Unknown]

NARRATIVE: CASE EVENT DATE: 20160801
